FAERS Safety Report 18416206 (Version 3)
Quarter: 2020Q4

REPORT INFORMATION
  Report Type: Spontaneous
  Country: ES (occurrence: ES)
  Receive Date: 20201022
  Receipt Date: 20201120
  Transmission Date: 20210114
  Serious: Yes (Hospitalization, Other)
  Sender: FDA-Public Use
  Company Number: ES-ASTRAZENECA-2020SF33756

PATIENT
  Age: 83 Year
  Sex: Male

DRUGS (12)
  1. OMEPRAZOLE. [Suspect]
     Active Substance: OMEPRAZOLE
     Indication: GASTRIC DISORDER
     Route: 048
  2. OMEPRAZOLE. [Suspect]
     Active Substance: OMEPRAZOLE
     Indication: GASTROINTESTINAL DISORDER
     Route: 048
  3. OMEPRAZOLE. [Suspect]
     Active Substance: OMEPRAZOLE
     Indication: GASTRIC DISORDER
     Route: 048
  4. DIGOXINA [Suspect]
     Active Substance: DIGOXIN
     Indication: CEREBROVASCULAR ACCIDENT
     Route: 048
  5. DOLOCATIL [Suspect]
     Active Substance: ACETAMINOPHEN
     Indication: PAIN
     Route: 048
  6. SINTROM [Suspect]
     Active Substance: ACENOCOUMAROL
     Indication: OEDEMA
     Route: 048
  7. OMEPRAZOLE. [Suspect]
     Active Substance: OMEPRAZOLE
     Indication: GASTROINTESTINAL DISORDER
     Route: 048
  8. PRO ULCO [Suspect]
     Active Substance: LANSOPRAZOLE
     Indication: GASTROINTESTINAL DISORDER
     Route: 048
  9. DIGOXINA [Suspect]
     Active Substance: DIGOXIN
     Indication: CEREBROVASCULAR ACCIDENT
     Dosage: 0.5 MILLIGRAM (EVERY 25 HOURS)
     Route: 048
  10. VALSARTAN MYLAN [Suspect]
     Active Substance: VALSARTAN
     Indication: BLOOD PRESSURE ABNORMAL
     Route: 048
  11. ATORVASTATINA MYLAN [Suspect]
     Active Substance: ATORVASTATIN
     Indication: URINARY INCONTINENCE
     Route: 048
  12. ENALAPRIL MYLAN [Suspect]
     Active Substance: ENALAPRIL
     Indication: BLOOD PRESSURE ABNORMAL
     Route: 048

REACTIONS (5)
  - Cough [Recovered/Resolved]
  - Fatigue [Recovered/Resolved]
  - Product dosage form issue [Recovered/Resolved]
  - Atrioventricular block complete [Recovered/Resolved]
  - Gastrointestinal disorder [Recovered/Resolved]
